FAERS Safety Report 7157114-5 (Version None)
Quarter: 2010Q4

REPORT INFORMATION
  Report Type: 
  Country: None (occurrence: None)
  Receive Date: 20101214
  Receipt Date: 20100107
  Transmission Date: 20110411
  Serious: No
  Sender: FDA-Public Use
  Company Number: US-ASTRAZENECA-2010SE00712

PATIENT
  Age: 73 Year
  Sex: Female
  Weight: 84.8 kg

DRUGS (7)
  1. CRESTOR [Suspect]
     Indication: BLOOD CHOLESTEROL ABNORMAL
     Route: 048
     Dates: start: 20090201, end: 20090301
  2. GABAPENTIN [Concomitant]
  3. TOPAMAX [Concomitant]
  4. SLEEPING PILL [Concomitant]
     Indication: INSOMNIA
  5. ALPRAZOLAM [Concomitant]
  6. VICODIN [Concomitant]
  7. VIVAGLOBIN [Concomitant]
     Indication: IMMUNE SYSTEM DISORDER

REACTIONS (2)
  - APHONIA [None]
  - COUGH [None]
